FAERS Safety Report 9728359 (Version 2)
Quarter: 2014Q1

REPORT INFORMATION
  Report Type: Spontaneous
  Country: JP (occurrence: JP)
  Receive Date: 20131204
  Receipt Date: 20140128
  Transmission Date: 20141002
  Serious: Yes (Other)
  Sender: FDA-Public Use
  Company Number: JP-JNJFOC-20131118406

PATIENT
  Age: 42 Year
  Sex: Male

DRUGS (11)
  1. TRAMCET [Suspect]
     Indication: PAIN
     Route: 048
     Dates: end: 20131023
  2. TRAMCET [Suspect]
     Indication: PAIN
     Route: 048
     Dates: start: 20130327, end: 201308
  3. TRAMCET [Suspect]
     Indication: PAIN
     Route: 048
     Dates: start: 201309
  4. TRAMCET [Suspect]
     Indication: POST HERPETIC NEURALGIA
     Route: 048
     Dates: end: 20131023
  5. TRAMCET [Suspect]
     Indication: POST HERPETIC NEURALGIA
     Route: 048
     Dates: start: 20130327, end: 201308
  6. TRAMCET [Suspect]
     Indication: POST HERPETIC NEURALGIA
     Route: 048
     Dates: start: 201309
  7. DEPAS [Concomitant]
     Indication: DEPRESSION
     Route: 048
     Dates: end: 20131120
  8. DEPAS [Concomitant]
     Indication: DRUG WITHDRAWAL SYNDROME
     Route: 048
     Dates: end: 20131120
  9. LYRICA [Concomitant]
     Indication: PAIN
     Route: 048
     Dates: start: 20130327, end: 20131023
  10. NOVAMIN [Concomitant]
     Indication: PROPHYLAXIS
     Dosage: 4 PER 1 DAY
     Route: 048
     Dates: start: 20130327, end: 20131023
  11. PURSENNID [Concomitant]
     Indication: PROPHYLAXIS
     Dosage: 2 PER 1 DAY
     Route: 048
     Dates: start: 20130327, end: 20131023

REACTIONS (2)
  - Drug withdrawal syndrome [Recovering/Resolving]
  - Wrong technique in drug usage process [Unknown]
